FAERS Safety Report 19172085 (Version 11)
Quarter: 2024Q4

REPORT INFORMATION
  Report Type: Report from Study
  Country: US (occurrence: US)
  Receive Date: 20210423
  Receipt Date: 20241213
  Transmission Date: 20250115
  Serious: Yes (Hospitalization, Other)
  Sender: NOVARTIS
  Company Number: NVSC2021US085296

PATIENT
  Age: 57 Year
  Sex: Female
  Weight: 81.7 kg

DRUGS (3)
  1. KESIMPTA [Suspect]
     Active Substance: OFATUMUMAB
     Indication: Product used for unknown indication
     Dosage: 20 MG,QMO (BENEATH THE SKIN)
     Route: 058
     Dates: start: 20210413
  2. KESIMPTA [Suspect]
     Active Substance: OFATUMUMAB
     Dosage: UNK
     Route: 058
     Dates: start: 20210511
  3. KESIMPTA [Suspect]
     Active Substance: OFATUMUMAB
     Dosage: UNK
     Route: 058
     Dates: start: 202202

REACTIONS (11)
  - Nephrolithiasis [Unknown]
  - Hepatic cirrhosis [Unknown]
  - Pyrexia [Recovered/Resolved]
  - Urticaria [Unknown]
  - Ill-defined disorder [Unknown]
  - Blood potassium decreased [Unknown]
  - Lethargy [Unknown]
  - Appetite disorder [Unknown]
  - Muscle tightness [Recovered/Resolved]
  - Headache [Recovered/Resolved]
  - Headache [Recovered/Resolved]

NARRATIVE: CASE EVENT DATE: 20210511
